FAERS Safety Report 4330186-9 (Version None)
Quarter: 2004Q1

REPORT INFORMATION
  Report Type: 
  Country: None (occurrence: None)
  Receive Date: 20040329
  Receipt Date: 20040315
  Transmission Date: 20041129
  Serious: Yes (Hospitalization)
  Sender: FDA-Public Use
  Company Number: 04P-028-0253641-00

PATIENT
  Age: 35 Year
  Sex: Male
  Weight: 61 kg

DRUGS (3)
  1. KALETRA [Suspect]
     Indication: HIV INFECTION
     Dosage: 600 MG, 1 IN 1 D, PER ORAL
     Route: 048
     Dates: start: 20040301
  2. ZIDOVUDINE W/LAMIVUDINE [Suspect]
     Indication: HIV INFECTION
     Dosage: 300/150 MG DAILY, PER ORAL
     Route: 048
     Dates: start: 20040301
  3. ACETAMINOPHEN [Concomitant]

REACTIONS (1)
  - PNEUMONIA [None]
